FAERS Safety Report 9030489 (Version 1)
Quarter: 2013Q1

REPORT INFORMATION
  Report Type: Spontaneous
  Country: US (occurrence: US)
  Receive Date: 20130122
  Receipt Date: 20130122
  Transmission Date: 20140127
  Serious: Yes (Other)
  Sender: FDA-Public Use
  Company Number: US-ROCHE-1057984

PATIENT
  Sex: Female
  Weight: 63.56 kg

DRUGS (4)
  1. ACCUTANE [Suspect]
     Indication: ACNE
     Route: 065
     Dates: start: 1993
  2. ACCUTANE [Suspect]
     Route: 065
     Dates: start: 1995
  3. ACCUTANE [Suspect]
     Route: 065
     Dates: start: 1999
  4. ACCUTANE [Suspect]
     Route: 065
     Dates: start: 199903, end: 199906

REACTIONS (4)
  - Colitis ulcerative [Unknown]
  - Emotional distress [Unknown]
  - Anxiety [Unknown]
  - Inflammatory bowel disease [Unknown]
